FAERS Safety Report 25751884 (Version 1)
Quarter: 2025Q3

REPORT INFORMATION
  Report Type: Spontaneous
  Country: US (occurrence: None)
  Receive Date: 20250901
  Receipt Date: 20250901
  Transmission Date: 20251020
  Serious: Yes (Life-Threatening, Disabling)
  Sender: FDA-CTU
  Company Number: None

PATIENT
  Age: 40 Year
  Sex: Female
  Weight: 103.5 kg

DRUGS (3)
  1. LAMICTAL [Suspect]
     Active Substance: LAMOTRIGINE
  2. LUVOX [Suspect]
     Active Substance: FLUVOXAMINE MALEATE
  3. COGENTIN [Suspect]
     Active Substance: BENZTROPINE MESYLATE

REACTIONS (16)
  - Drug ineffective [None]
  - Withdrawal syndrome [None]
  - Nausea [None]
  - Fatigue [None]
  - Pain [None]
  - Hyperhidrosis [None]
  - Chills [None]
  - Insomnia [None]
  - Nightmare [None]
  - Anxiety [None]
  - Irritability [None]
  - Crying [None]
  - Depression [None]
  - Nervousness [None]
  - Nervous system disorder [None]
  - Fear [None]

NARRATIVE: CASE EVENT DATE: 20250830
